FAERS Safety Report 7904843-9 (Version None)
Quarter: 2011Q4

REPORT INFORMATION
  Report Type: 
  Country: None (occurrence: None)
  Receive Date: 20111109
  Receipt Date: 20111031
  Transmission Date: 20120403
  Serious: Yes (Hospitalization)
  Sender: FDA-Public Use
  Company Number: PHEH2011US08346

PATIENT
  Sex: Female

DRUGS (3)
  1. GILENYA [Suspect]
     Dosage: 0.5 MG, UNK
     Route: 048
  2. TRAZODONE HYDROCHLORIDE [Concomitant]
     Dosage: UNK UKN, UNK
  3. PRISTIQ [Concomitant]
     Dosage: UNK UKN, UNK

REACTIONS (2)
  - OEDEMA PERIPHERAL [None]
  - SWELLING FACE [None]
